FAERS Safety Report 25992727 (Version 1)
Quarter: 2025Q4

REPORT INFORMATION
  Report Type: Spontaneous
  Country: UY (occurrence: UY)
  Receive Date: 20251103
  Receipt Date: 20251103
  Transmission Date: 20260118
  Serious: Yes (Death, Other)
  Sender: BIOMARIN
  Company Number: UY-BIOMARINAP-UY-2025-169836

PATIENT
  Age: 11 Year
  Sex: Female

DRUGS (3)
  1. BRINEURA [Suspect]
     Active Substance: CERLIPONASE ALFA
     Indication: Neuronal ceroid lipofuscinosis
     Dosage: 300 MILLIGRAM, QOW
     Dates: start: 202007, end: 20250701
  2. LEVETIRACETAM [Concomitant]
     Active Substance: LEVETIRACETAM
     Indication: Product used for unknown indication
  3. MIDAZOLAM [Concomitant]
     Active Substance: MIDAZOLAM
     Indication: Product used for unknown indication

REACTIONS (4)
  - Death [Fatal]
  - Seizure [Unknown]
  - Pain [Unknown]
  - Disease progression [Unknown]

NARRATIVE: CASE EVENT DATE: 20250601
